FAERS Safety Report 8238929-9 (Version None)
Quarter: 2012Q1

REPORT INFORMATION
  Report Type: 
  Country: None (occurrence: None)
  Receive Date: 20120327
  Receipt Date: 20120319
  Transmission Date: 20120608
  Serious: Yes (Other)
  Sender: FDA-Public Use
  Company Number: US-ROCHE-784954

PATIENT
  Sex: Female
  Weight: 61.29 kg

DRUGS (2)
  1. ACCUTANE [Suspect]
     Indication: ACNE
     Route: 065
     Dates: start: 19860801, end: 19871201
  2. TYLENOL [Concomitant]

REACTIONS (8)
  - DEPRESSION [None]
  - INTESTINAL OBSTRUCTION [None]
  - FEMALE GENITAL TRACT FISTULA [None]
  - EMOTIONAL DISTRESS [None]
  - COLITIS ULCERATIVE [None]
  - ANAL FISTULA [None]
  - SMALL INTESTINAL PERFORATION [None]
  - INFLAMMATORY BOWEL DISEASE [None]
